FAERS Safety Report 9165594 (Version 1)
Quarter: 2013Q1

REPORT INFORMATION
  Report Type: Spontaneous
  Country: CH (occurrence: None)
  Receive Date: 20130301
  Receipt Date: 20130301
  Transmission Date: 20140127
  Serious: Yes (Other)
  Sender: FDA-Public Use
  Company Number: SYM-2013-00931

PATIENT
  Sex: Male

DRUGS (2)
  1. WELLBUTRIN XL (BUPROPION HYDROCHLORIDE)(TABLETS)(BUPROPION HYDROCHLORIDE) [Suspect]
     Route: 048
     Dates: start: 201302
  2. MIRTAZAPINE (MIRTAZAPINE) (MIRTAZAPINE) [Concomitant]

REACTIONS (2)
  - Electrocardiogram QT prolonged [None]
  - Hyponatraemia [None]
